FAERS Safety Report 4315375-1 (Version None)
Quarter: 2004Q1

REPORT INFORMATION
  Report Type: 
  Country: None (occurrence: None)
  Receive Date: 20040310
  Receipt Date: 20040310
  Transmission Date: 20041129
  Serious: Yes (Life-Threatening)
  Sender: FDA-Public Use
  Company Number: None

PATIENT
  Sex: Male
  Weight: 84.5958 kg

DRUGS (16)
  1. IRESSA [Suspect]
     Indication: COLON CANCER METASTATIC
     Dosage: 250MG PO DAILY FOR 2 WKS
     Route: 048
     Dates: start: 20040204, end: 20040223
  2. IRINOTECAN [Suspect]
     Indication: COLON CANCER METASTATIC
     Dosage: 180 MG/M2 IV BOLUS D1 OF EACH CYCLE
     Route: 040
     Dates: start: 20040203, end: 20040218
  3. LEUCOVORIN [Suspect]
     Indication: COLON CANCER METASTATIC
     Dosage: 200 MG/M2 BOLUS D1 OF EACH CYCLE
     Route: 040
     Dates: start: 20040203, end: 20040218
  4. FLUOROURACIL [Suspect]
     Indication: COLON CANCER METASTATIC
     Dosage: 400 MG/M2 IV PUSH D1 OF EACH CYCLE
     Route: 042
     Dates: start: 20040203, end: 20040218
  5. FLUOROURACIL INJ [Suspect]
     Indication: COLON CANCER METASTATIC
     Dosage: 1200 MG/M2 IV CONT INF DAYS 1-3 EACH CYCLE
     Route: 042
     Dates: start: 20040203, end: 20040220
  6. DETROL LA [Concomitant]
  7. NEXIUM [Concomitant]
  8. MULTIVITAMIN [Concomitant]
  9. VITAMIN E [Concomitant]
  10. CALCIUM [Concomitant]
  11. FERROUS SULFATE TAB [Concomitant]
  12. COMPAZINE [Concomitant]
  13. ZOFRAN [Concomitant]
  14. CLEOCIN T [Concomitant]
  15. ARANESP [Concomitant]
  16. LEVAQUIN [Concomitant]

REACTIONS (3)
  - COUGH [None]
  - DIARRHOEA [None]
  - NEUTROPENIA [None]
